FAERS Safety Report 8353864-3 (Version None)
Quarter: 2012Q2

REPORT INFORMATION
  Report Type: 
  Country: None (occurrence: None)
  Receive Date: 20120511
  Receipt Date: 20120123
  Transmission Date: 20120825
  Serious: No
  Sender: FDA-Public Use
  Company Number: US-GLAXOSMITHKLINE-A0962725A

PATIENT
  Age: 49 Year
  Sex: Female

DRUGS (7)
  1. TYKERB [Suspect]
     Indication: BREAST CANCER
     Dosage: 1000MG PER DAY
     Route: 048
     Dates: start: 20120121
  2. PRILOSEC [Concomitant]
  3. CALCIUM + D [Concomitant]
  4. HERCEPTIN [Concomitant]
  5. OXYCONTIN [Concomitant]
  6. IRON SUPPLEMENT [Concomitant]
  7. KLOR-CON [Concomitant]

REACTIONS (2)
  - DECREASED APPETITE [None]
  - DIARRHOEA [None]
